FAERS Safety Report 13967365 (Version 1)
Quarter: 2017Q3

REPORT INFORMATION
  Report Type: Spontaneous
  Country: US (occurrence: US)
  Receive Date: 20170914
  Receipt Date: 20170914
  Transmission Date: 20171128
  Serious: No
  Sender: FDA-Public Use
  Company Number: US-PFIZER INC-2017398039

PATIENT
  Sex: Female

DRUGS (1)
  1. AMINOPHYLLINE. [Suspect]
     Active Substance: AMINOPHYLLINE
     Indication: HYPOAESTHESIA
     Dosage: 100 MG, (GIVEN AT 3 MINUTES PER STRESS PROTOCOL)
     Route: 042

REACTIONS (1)
  - Drug ineffective for unapproved indication [Unknown]
